FAERS Safety Report 6935655-0 (Version None)
Quarter: 2010Q3

REPORT INFORMATION
  Report Type: 
  Country: None (occurrence: None)
  Receive Date: 20100823
  Receipt Date: 20100813
  Transmission Date: 20110219
  Serious: Yes (Other)
  Sender: FDA-Public Use
  Company Number: US-JNJFOC-20100805662

PATIENT
  Sex: Female
  Weight: 50.8 kg

DRUGS (6)
  1. FENTANYL CITRATE [Suspect]
     Indication: BACK PAIN
     Route: 062
  2. FENTANYL CITRATE [Suspect]
     Route: 062
  3. FENTANYL-100 [Suspect]
     Indication: BACK PAIN
     Route: 062
  4. FEXOFENADINE HCL [Concomitant]
     Indication: URTICARIA
     Route: 048
  5. LEXAPRO [Concomitant]
     Indication: DEPRESSION
     Route: 048
  6. SYNTHROID [Concomitant]
     Indication: THYROID DISORDER
     Route: 048

REACTIONS (8)
  - ANXIETY [None]
  - APPLICATION SITE REACTION [None]
  - DEMENTIA ALZHEIMER'S TYPE [None]
  - FEELING ABNORMAL [None]
  - MALAISE [None]
  - PRODUCT ADHESION ISSUE [None]
  - PRODUCT QUALITY ISSUE [None]
  - URINARY TRACT INFECTION [None]
